FAERS Safety Report 9238197 (Version 1)
Quarter: 2013Q2

REPORT INFORMATION
  Report Type: Spontaneous
  Country: NL (occurrence: NL)
  Receive Date: 20130418
  Receipt Date: 20130418
  Transmission Date: 20140414
  Serious: Yes (Other)
  Sender: FDA-Public Use
  Company Number: NL-BAYER-2013-048693

PATIENT
  Sex: Male

DRUGS (1)
  1. KOGENATE BAYER [Suspect]
     Route: 064

REACTIONS (1)
  - Haemophilia [None]
